FAERS Safety Report 9164515 (Version 2)
Quarter: 2013Q1

REPORT INFORMATION
  Report Type: Spontaneous
  Country: FR (occurrence: FR)
  Receive Date: 20130315
  Receipt Date: 20130327
  Transmission Date: 20140127
  Serious: Yes (Hospitalization)
  Sender: FDA-Public Use
  Company Number: PHHY2013FR023946

PATIENT
  Age: 53 Year
  Sex: Male

DRUGS (9)
  1. VOLTAREN [Suspect]
     Indication: GOUT
     Dosage: 50 MG, QID
  2. ACETYLSALICYLIC ACID [Suspect]
     Indication: GOUT
     Dosage: 500 MG, TID
  3. COLCHIMAX [Suspect]
     Indication: GOUT
     Dosage: 6 MG, DAILY
  4. LASILIX [Suspect]
     Dosage: 20 MG, PER DAY
  5. ALDALIX [Suspect]
  6. OLMETEC [Suspect]
     Dosage: 40 MG, PER DAY
  7. GLUCOPHAGE [Suspect]
     Dosage: 700 MG, TID
  8. LANTUS [Concomitant]
     Dosage: 28 IU, QD
  9. NOVORAPID [Concomitant]
     Dosage: 20 IU, TID

REACTIONS (14)
  - Neuromyopathy [Unknown]
  - Rhabdomyolysis [Unknown]
  - Renal failure acute [Unknown]
  - Gait disturbance [Recovering/Resolving]
  - Motor dysfunction [Recovered/Resolved]
  - Areflexia [Unknown]
  - Muscular weakness [Unknown]
  - Diarrhoea [Unknown]
  - Nausea [Unknown]
  - Vomiting [Unknown]
  - Hyperkalaemia [Unknown]
  - Myoglobinaemia [Unknown]
  - Paraesthesia [Not Recovered/Not Resolved]
  - Gravitational oedema [Unknown]
